FAERS Safety Report 5624358-0 (Version None)
Quarter: 2008Q1

REPORT INFORMATION
  Report Type: 
  Country: None (occurrence: None)
  Receive Date: 20080213
  Receipt Date: 20080128
  Transmission Date: 20080703
  Serious: Yes (Other)
  Sender: FDA-Public Use
  Company Number: US-BAYER-200610095BBE

PATIENT
  Sex: Female

DRUGS (1)
  1. HYPRHO-D [Suspect]
     Indication: PREGNANCY

REACTIONS (1)
  - METAL POISONING [None]
